FAERS Safety Report 18485344 (Version 1)
Quarter: 2020Q4

REPORT INFORMATION
  Report Type: Spontaneous
  Country: US (occurrence: US)
  Receive Date: 20201110
  Receipt Date: 20201110
  Transmission Date: 20210114
  Serious: Yes (Other)
  Sender: FDA-Public Use
  Company Number: US-MYLANLABS-2020M1093061

PATIENT
  Age: 59 Year
  Sex: Male

DRUGS (1)
  1. OLMESARTAN MEDOXOMIL. [Suspect]
     Active Substance: OLMESARTAN MEDOXOMIL
     Indication: HYPERTENSION
     Dosage: UNK
     Route: 065

REACTIONS (5)
  - Malabsorption [Recovered/Resolved]
  - Sprue-like enteropathy [Recovered/Resolved]
  - Liver injury [Recovered/Resolved]
  - Weight decreased [Recovered/Resolved]
  - Portal tract inflammation [Recovered/Resolved]
